FAERS Safety Report 11869419 (Version 2)
Quarter: 2016Q1

REPORT INFORMATION
  Report Type: Report from Study
  Country: US (occurrence: US)
  Receive Date: 20151227
  Receipt Date: 20160202
  Transmission Date: 20160526
  Serious: Yes (Hospitalization)
  Sender: FDA-Public Use
  Company Number: US-MALLINCKRODT-T201505692

PATIENT
  Age: 41 Year
  Sex: Female

DRUGS (3)
  1. SOLU-MEDROL [Concomitant]
     Active Substance: METHYLPREDNISOLONE SODIUM SUCCINATE
     Dosage: UNK
     Dates: end: 201510
  2. REPOSITORY CORTICOTROPIN INJECTION [Suspect]
     Active Substance: CORTICOTROPIN
     Indication: OPTIC NEURITIS
  3. REPOSITORY CORTICOTROPIN INJECTION [Suspect]
     Active Substance: CORTICOTROPIN
     Indication: MULTIPLE SCLEROSIS
     Dosage: 80 UNITS ONCE DAILY FOR 5 DAYS FOR 3 CONSECUTIVE MONTHS (NOV AND DEC 2015/JAN 2016
     Route: 058
     Dates: start: 201511

REACTIONS (4)
  - Premature delivery [Recovered/Resolved]
  - Induced labour [Recovered/Resolved]
  - Exposure during pregnancy [Recovered/Resolved]
  - Pre-eclampsia [Recovered/Resolved]

NARRATIVE: CASE EVENT DATE: 2015
